FAERS Safety Report 4551650-3 (Version None)
Quarter: 2005Q1

REPORT INFORMATION
  Report Type: 
  Country: None (occurrence: None)
  Receive Date: 20050111
  Receipt Date: 20041230
  Transmission Date: 20050727
  Serious: Yes (Disabling, Other)
  Sender: FDA-Public Use
  Company Number: 200407879

PATIENT
  Age: 55 Year
  Sex: Female

DRUGS (5)
  1. BOTOX [Suspect]
     Indication: FACIAL SPASM
     Dosage: SEE IMAGE
     Route: 030
     Dates: start: 19960419, end: 19960419
  2. BOTOX [Suspect]
     Indication: FACIAL SPASM
     Dosage: SEE IMAGE
     Route: 030
     Dates: start: 19960808, end: 19960808
  3. BOTOX [Suspect]
     Indication: FACIAL SPASM
     Dosage: SEE IMAGE
     Route: 030
     Dates: start: 19960815, end: 19960815
  4. BOTOX [Suspect]
     Indication: FACIAL SPASM
     Dosage: SEE IMAGE
     Route: 030
     Dates: start: 19960924, end: 19960924
  5. BOTOX [Suspect]
     Indication: FACIAL SPASM
     Dosage: SEE IMAGE
     Route: 030
     Dates: start: 19961212, end: 19961212

REACTIONS (42)
  - ACROCHORDON [None]
  - ACTINIC KERATOSIS [None]
  - ARTHRALGIA [None]
  - CARPAL TUNNEL SYNDROME [None]
  - CHEST PAIN [None]
  - CORNEAL SCAR [None]
  - CRANIAL NERVE DISORDER [None]
  - DEPRESSION [None]
  - DIVERTICULUM [None]
  - DROOLING [None]
  - DRUG INEFFECTIVE [None]
  - DRY EYE [None]
  - DYSARTHRIA [None]
  - ELECTROCARDIOGRAM ABNORMAL [None]
  - ELECTROCARDIOGRAM T WAVE ABNORMAL [None]
  - EYE PRURITUS [None]
  - EYELID FUNCTION DISORDER [None]
  - FACIAL PALSY [None]
  - HAEMORRHOIDS [None]
  - HYPOAESTHESIA [None]
  - IMPAIRED WORK ABILITY [None]
  - INGROWING NAIL [None]
  - KERATITIS HERPETIC [None]
  - LACRIMATION INCREASED [None]
  - MUSCLE SPASMS [None]
  - MUSCLE TWITCHING [None]
  - NEPHROLITHIASIS [None]
  - NERVE COMPRESSION [None]
  - NERVOUS SYSTEM DISORDER [None]
  - OCULAR HYPERAEMIA [None]
  - OSTEOARTHRITIS [None]
  - PAIN IN EXTREMITY [None]
  - PARONYCHIA [None]
  - POST PROCEDURAL COMPLICATION [None]
  - RECTAL HAEMORRHAGE [None]
  - SEBORRHOEIC KERATOSIS [None]
  - SKIN LESION [None]
  - TINEL'S SIGN [None]
  - TOE DEFORMITY [None]
  - VERTIGO [None]
  - VIRAL LABYRINTHITIS [None]
  - VISUAL ACUITY REDUCED [None]
